FAERS Safety Report 8481884-7 (Version None)
Quarter: 2012Q3

REPORT INFORMATION
  Report Type: 
  Country: None (occurrence: None)
  Receive Date: 20120702
  Receipt Date: 20120627
  Transmission Date: 20120928
  Serious: Yes (Hospitalization)
  Sender: FDA-Public Use
  Company Number: US-GILEAD-2012-0055407

PATIENT
  Sex: Female

DRUGS (1)
  1. LETAIRIS [Suspect]
     Indication: PRODUCT USED FOR UNKNOWN INDICATION
     Dosage: 10 MG, UNK
     Route: 048
     Dates: start: 20100325

REACTIONS (8)
  - ANAEMIA [None]
  - SYNCOPE [None]
  - URINARY TRACT INFECTION [None]
  - HYPOTENSION [None]
  - DEHYDRATION [None]
  - GASTROENTERITIS VIRAL [None]
  - TRANSFUSION [None]
  - POLLAKIURIA [None]
